FAERS Safety Report 12182437 (Version 3)
Quarter: 2017Q2

REPORT INFORMATION
  Report Type: Report from Study
  Country: FR (occurrence: FR)
  Receive Date: 20160316
  Receipt Date: 20170510
  Transmission Date: 20170830
  Serious: Yes (Hospitalization, Other)
  Sender: FDA-Public Use
  Company Number: FR-ROCHE-1607527

PATIENT
  Age: 64 Year
  Sex: Female
  Weight: 113 kg

DRUGS (15)
  1. RANIBIZUMAB [Suspect]
     Active Substance: RANIBIZUMAB
     Dosage: LEFT EYE
     Route: 050
     Dates: start: 20150224, end: 20150224
  2. RANIBIZUMAB [Suspect]
     Active Substance: RANIBIZUMAB
     Dosage: LEFT EYE
     Route: 050
     Dates: start: 20150403
  3. LASILIX [Concomitant]
     Active Substance: FUROSEMIDE
     Indication: PRODUCT USED FOR UNKNOWN INDICATION
     Route: 065
  4. RANIBIZUMAB [Suspect]
     Active Substance: RANIBIZUMAB
     Route: 050
     Dates: start: 20150731
  5. RANIBIZUMAB [Suspect]
     Active Substance: RANIBIZUMAB
     Dosage: LEFT EYE,
     Route: 050
     Dates: start: 20150128
  6. RANIBIZUMAB [Suspect]
     Active Substance: RANIBIZUMAB
     Dosage: LEFT EYE
     Route: 050
     Dates: start: 20150610, end: 20150610
  7. RANIBIZUMAB [Suspect]
     Active Substance: RANIBIZUMAB
     Dosage: LEFT EYE
     Route: 050
     Dates: start: 20151029, end: 20151029
  8. INSULIN [Concomitant]
     Active Substance: INSULIN NOS
     Indication: DIABETES MELLITUS
     Route: 065
     Dates: start: 2005
  9. INSULIN [Concomitant]
     Active Substance: INSULIN NOS
     Route: 065
     Dates: start: 20150510
  10. LEVOTHYROX [Concomitant]
     Active Substance: LEVOTHYROXINE
     Indication: HYPOTHYROIDISM
     Route: 065
  11. RANIBIZUMAB [Suspect]
     Active Substance: RANIBIZUMAB
     Route: 050
     Dates: start: 20150918
  12. RANIBIZUMAB [Suspect]
     Active Substance: RANIBIZUMAB
     Dosage: LEFT EYE
     Route: 050
     Dates: start: 20150430, end: 20150430
  13. RANIBIZUMAB [Suspect]
     Active Substance: RANIBIZUMAB
     Indication: DIABETIC RETINAL OEDEMA
     Dosage: LEFT EYE
     Route: 050
     Dates: start: 20150102
  14. PREVISCAN (FLUINDIONE) [Concomitant]
     Active Substance: FLUINDIONE
     Indication: ATRIAL FIBRILLATION
  15. SEVIKAR [Concomitant]
     Active Substance: AMLODIPINE BESYLATE\OLMESARTAN MEDOXOMIL
     Indication: PRODUCT USED FOR UNKNOWN INDICATION
     Route: 065

REACTIONS (32)
  - Diabetes mellitus [Recovered/Resolved]
  - Migraine [Unknown]
  - Ocular hyperaemia [Unknown]
  - C-reactive protein increased [Unknown]
  - Creatinine renal clearance decreased [Unknown]
  - Vitreous floaters [Recovered/Resolved]
  - Glycosylated haemoglobin increased [Unknown]
  - Inappropriate schedule of drug administration [Unknown]
  - Intertrigo [Unknown]
  - Photopsia [Not Recovered/Not Resolved]
  - Blood pressure increased [Recovered/Resolved]
  - Blood cholesterol increased [Unknown]
  - Eye pruritus [Unknown]
  - General physical health deterioration [Unknown]
  - Pain [Not Recovered/Not Resolved]
  - Migraine with aura [Recovered/Resolved]
  - White blood cell count increased [Unknown]
  - Vision blurred [Unknown]
  - Pollakiuria [Unknown]
  - Fall [Unknown]
  - Foreign body sensation in eyes [Unknown]
  - Haemoglobin decreased [Unknown]
  - Chills [Unknown]
  - Asthenia [Recovered/Resolved]
  - Blood creatinine increased [Unknown]
  - Heart rate increased [Unknown]
  - Dysuria [Unknown]
  - Sepsis [Unknown]
  - Pyelonephritis acute [Recovered/Resolved]
  - Systemic inflammatory response syndrome [Recovered/Resolved]
  - Eye pain [Recovered/Resolved]
  - Dry eye [Unknown]

NARRATIVE: CASE EVENT DATE: 201505
